APPROVED DRUG PRODUCT: DEXAMETHASONE
Active Ingredient: DEXAMETHASONE
Strength: 4MG
Dosage Form/Route: TABLET;ORAL
Application: A217001 | Product #001 | TE Code: AB
Applicant: BIONPHARMA INC
Approved: Apr 19, 2023 | RLD: No | RS: No | Type: RX